FAERS Safety Report 6085852-4 (Version None)
Quarter: 2009Q1

REPORT INFORMATION
  Report Type: 
  Country: None (occurrence: None)
  Receive Date: 20090220
  Receipt Date: 20090211
  Transmission Date: 20090719
  Serious: Yes (Hospitalization)
  Sender: FDA-Public Use
  Company Number: B0558714A

PATIENT
  Age: 69 Year
  Sex: Female

DRUGS (6)
  1. DEROXAT [Suspect]
     Indication: DEPRESSION
     Dosage: 1UNIT PER DAY
     Route: 048
  2. PREVISCAN [Suspect]
     Indication: ATRIAL FIBRILLATION
     Route: 048
     Dates: start: 20080116, end: 20090113
  3. FLECAINE [Concomitant]
     Indication: ARRHYTHMIA
     Dosage: 1TAB PER DAY
     Route: 048
  4. TAHOR [Concomitant]
     Indication: DYSLIPIDAEMIA
     Dosage: 1TAB PER DAY
     Route: 048
  5. COVERSYL [Concomitant]
     Indication: HYPERTENSION
     Dosage: 1TAB PER DAY
     Route: 048
  6. XANAX [Concomitant]
     Indication: DEPRESSION
     Dosage: 1TAB PER DAY
     Route: 048

REACTIONS (5)
  - ANAEMIA MACROCYTIC [None]
  - CARDIAC MURMUR [None]
  - HAEMATOMA [None]
  - PALLOR [None]
  - TACHYPNOEA [None]
